FAERS Safety Report 10901619 (Version 1)
Quarter: 2015Q1

REPORT INFORMATION
  Report Type: Spontaneous
  Country: None (occurrence: None)
  Receive Date: 20150303
  Receipt Date: 20150303
  Transmission Date: 20150721
  Serious: Yes (Other)
  Sender: FDA-Public Use
  Company Number: None

PATIENT
  Age: 53 Year
  Sex: Male
  Weight: 88.45 kg

DRUGS (1)
  1. HUMIRA [Suspect]
     Active Substance: ADALIMUMAB
     Indication: RHEUMATOID ARTHRITIS
     Dosage: 1 PEN EVERY 2 WEEKS   2 WEEKS    SHOT IN UPPER THIGHS
     Dates: start: 20141225, end: 20150211

REACTIONS (4)
  - Injection site rash [None]
  - Rash [None]
  - Headache [None]
  - Night sweats [None]

NARRATIVE: CASE EVENT DATE: 20150211
